FAERS Safety Report 8192116-1 (Version None)
Quarter: 2012Q1

REPORT INFORMATION
  Report Type: 
  Country: None (occurrence: None)
  Receive Date: 20120307
  Receipt Date: 20120302
  Transmission Date: 20120608
  Serious: Yes (Other)
  Sender: FDA-Public Use
  Company Number: FR-PFIZER INC-2012056100

PATIENT
  Age: 36 Year
  Sex: Male

DRUGS (2)
  1. FENOFIBRATE [Concomitant]
  2. IBUPROFEN [Suspect]
     Indication: RHINITIS
     Dosage: 1 DF, 2X/DAY
     Dates: start: 20120120, end: 20120121

REACTIONS (4)
  - APHTHOUS STOMATITIS [None]
  - PRURITUS [None]
  - LIP OEDEMA [None]
  - PENILE OEDEMA [None]
